FAERS Safety Report 7410386-1 (Version None)
Quarter: 2011Q2

REPORT INFORMATION
  Report Type: 
  Country: None (occurrence: None)
  Receive Date: 20110412
  Receipt Date: 20110406
  Transmission Date: 20111010
  Serious: Yes (Hospitalization, Other)
  Sender: FDA-Public Use
  Company Number: US-ABBOTT-11P-163-0717705-00

PATIENT
  Sex: Male
  Weight: 122.58 kg

DRUGS (16)
  1. HUMIRA [Suspect]
     Route: 058
     Dates: start: 20100301, end: 20101117
  2. MEDROL [Concomitant]
     Indication: PRODUCT USED FOR UNKNOWN INDICATION
  3. ALLOPURINOL [Concomitant]
     Indication: GOUT
  4. LEXAPRO [Concomitant]
     Indication: PRODUCT USED FOR UNKNOWN INDICATION
  5. LIPITOR [Concomitant]
     Indication: PRODUCT USED FOR UNKNOWN INDICATION
  6. METFORMIN HCL [Concomitant]
     Indication: DIABETES MELLITUS
  7. ATENOLOL AND CHLORTHALIDONE [Concomitant]
     Indication: HYPERTENSION
  8. COUMADIN [Concomitant]
     Indication: PRODUCT USED FOR UNKNOWN INDICATION
  9. MS CONTIN [Concomitant]
     Indication: PRODUCT USED FOR UNKNOWN INDICATION
  10. PROVIGIL [Concomitant]
     Indication: PRODUCT USED FOR UNKNOWN INDICATION
  11. HUMIRA [Suspect]
     Route: 058
     Dates: start: 20110311
  12. VERAPAMIL [Concomitant]
     Indication: PRODUCT USED FOR UNKNOWN INDICATION
  13. HUMIRA [Suspect]
     Indication: RHEUMATOID ARTHRITIS
     Route: 058
  14. BENAZEPRIL HYDROCHLORIDE [Concomitant]
     Indication: PRODUCT USED FOR UNKNOWN INDICATION
  15. AMBIEN [Concomitant]
     Indication: PRODUCT USED FOR UNKNOWN INDICATION
  16. IMITREX [Concomitant]
     Indication: MIGRAINE

REACTIONS (5)
  - AORTIC VALVE INCOMPETENCE [None]
  - PERICARDIAL EFFUSION [None]
  - RESPIRATORY DISORDER [None]
  - AORTIC STENOSIS [None]
  - CEREBROVASCULAR ACCIDENT [None]
